FAERS Safety Report 10135953 (Version 2)
Quarter: 2014Q2

REPORT INFORMATION
  Report Type: Spontaneous
  Country: GB (occurrence: GB)
  Receive Date: 20140429
  Receipt Date: 20140429
  Transmission Date: 20141212
  Serious: Yes (Other)
  Sender: FDA-Public Use
  Company Number: GB-ROCHE-1370808

PATIENT
  Age: 79 Year
  Sex: Female

DRUGS (1)
  1. XENICAL [Suspect]
     Indication: OBESITY
     Route: 048
     Dates: start: 20140307, end: 20140327

REACTIONS (3)
  - Overweight [Recovered/Resolved]
  - Weight increased [Unknown]
  - Drug ineffective [Unknown]
